FAERS Safety Report 7774737-0 (Version None)
Quarter: 2011Q3

REPORT INFORMATION
  Report Type: 
  Country: None (occurrence: None)
  Receive Date: 20110923
  Receipt Date: 20110913
  Transmission Date: 20111222
  Serious: Yes (Other)
  Sender: FDA-Public Use
  Company Number: US-ROCHE-575964

PATIENT
  Sex: Female

DRUGS (3)
  1. OXALIPLATIN [Suspect]
     Indication: OVARIAN CANCER RECURRENT
     Dosage: GIVEN ON DAYS 1 AND 15 OF A 28-DAY CYCLE. FORM: INFUSION
     Route: 065
  2. BEVACIZUMAB [Suspect]
     Indication: OVARIAN CANCER RECURRENT
     Dosage: GIVEN ON DAYS 1 AND 15 OF A 28-DAY CYCLE. FORM: INFUSION
     Route: 065
  3. GEMCITABINE [Suspect]
     Indication: OVARIAN CANCER RECURRENT
     Dosage: GIVEN ON DAYS 1 AND 15 OF A 28-DAY CYCLE. FORM: INFUSION
     Route: 065

REACTIONS (7)
  - FATIGUE [None]
  - HEPATOTOXICITY [None]
  - HYPERSENSITIVITY [None]
  - HYPERTENSION [None]
  - PULMONARY ARTERY THROMBOSIS [None]
  - HEADACHE [None]
  - NEUTROPENIA [None]
